FAERS Safety Report 6705259-3 (Version None)
Quarter: 2010Q2

REPORT INFORMATION
  Report Type: 
  Country: None (occurrence: None)
  Receive Date: 20100430
  Receipt Date: 20100419
  Transmission Date: 20101027
  Serious: Yes (Death, Other)
  Sender: FDA-Public Use
  Company Number: US-ELI_LILLY_AND_COMPANY-US201004005255

PATIENT
  Age: 45 Year
  Sex: Female

DRUGS (4)
  1. CYMBALTA [Suspect]
     Dosage: 60 MG, DAILY (1/D)
  2. BACLOFEN [Concomitant]
  3. GABAPENTIN [Concomitant]
  4. TOLTERODINE [Concomitant]

REACTIONS (3)
  - COMPLETED SUICIDE [None]
  - DRUG TOXICITY [None]
  - OVERDOSE [None]
